FAERS Safety Report 5080894-X (Version None)
Quarter: 2006Q3

REPORT INFORMATION
  Report Type: 
  Country: None (occurrence: None)
  Receive Date: 20060811
  Receipt Date: 20060804
  Transmission Date: 20061208
  Serious: Yes (Other)
  Sender: FDA-Public Use
  Company Number: 2006095980

PATIENT
  Age: 66 Year
  Sex: Male
  Weight: 77.1115 kg

DRUGS (3)
  1. CADUET [Suspect]
     Indication: BLOOD CHOLESTEROL
     Dosage: 20MG/40MG (2 IN 1 D), ORAL
     Route: 048
     Dates: start: 20060501, end: 20060603
  2. PREVACID [Concomitant]
  3. SOTALOL (SOTALOL) [Concomitant]

REACTIONS (2)
  - ARRHYTHMIA [None]
  - CONDITION AGGRAVATED [None]
